FAERS Safety Report 8047406-X (Version None)
Quarter: 2012Q1

REPORT INFORMATION
  Report Type: 
  Country: None (occurrence: None)
  Receive Date: 20120116
  Receipt Date: 20120111
  Transmission Date: 20120608
  Serious: Yes (Hospitalization)
  Sender: FDA-Public Use
  Company Number: US-BAYER-2011-117310

PATIENT
  Age: 28 Year
  Sex: Female
  Weight: 78.458 kg

DRUGS (1)
  1. YAZ [Suspect]
     Indication: CONTRACEPTION
     Dosage: UNK
     Dates: start: 20101118, end: 20110601

REACTIONS (1)
  - PULMONARY EMBOLISM [None]
